FAERS Safety Report 9478479 (Version 1)
Quarter: 2013Q3

REPORT INFORMATION
  Report Type: Spontaneous
  Country: FR (occurrence: FR)
  Receive Date: 20130827
  Receipt Date: 20130827
  Transmission Date: 20140515
  Serious: Yes (Hospitalization, Other)
  Sender: FDA-Public Use
  Company Number: FR-009507513-1308FRA009299

PATIENT
  Age: 34 Year
  Sex: Male

DRUGS (7)
  1. NOROXINE [Suspect]
     Dosage: 400 MG, ONCE
     Route: 048
     Dates: start: 20130406, end: 20130406
  2. BI-PROFENID [Suspect]
     Indication: MIGRAINE WITH AURA
     Dosage: 150 MG, ONCE
     Route: 048
     Dates: start: 20130402, end: 20130402
  3. ASPEGIC [Suspect]
     Indication: BACK PAIN
     Dosage: 1000 MG, QID
     Route: 048
     Dates: start: 20130403, end: 20130405
  4. XENETIX [Suspect]
     Indication: SCAN WITH CONTRAST
     Dosage: 1 DF, QD
     Route: 042
     Dates: start: 20130406, end: 20130406
  5. NIFLURIL (MORNIFLUMATE) [Suspect]
     Dosage: 500 MG, QD
     Route: 048
     Dates: start: 20130406, end: 20130406
  6. PROFENID [Suspect]
     Indication: PAIN
     Dosage: 100 MG, QD
     Route: 048
     Dates: start: 20130406, end: 20130406
  7. SPASFON [Suspect]
     Dosage: 1 DF, QD
     Route: 042
     Dates: start: 20130406, end: 20130406

REACTIONS (2)
  - Renal failure acute [Recovering/Resolving]
  - Back pain [Recovered/Resolved]
